FAERS Safety Report 8889144 (Version 2)
Quarter: 2012Q4

REPORT INFORMATION
  Report Type: 
  Country: JP (occurrence: JP)
  Receive Date: 20121106
  Receipt Date: 20121113
  Transmission Date: 20130627
  Serious: Yes (Life-Threatening)
  Sender: FDA-Public Use
  Company Number: JP-ABBOTT-12P-087-1004743-00

PATIENT
  Age: 62 Year
  Sex: Male

DRUGS (6)
  1. SEVORANE [Suspect]
     Indication: ANAESTHESIA
     Dosage: 1.5% daily
     Dates: start: 20120621, end: 20120621
  2. PROPOFOL [Suspect]
     Indication: INDUCTION OF ANAESTHESIA
     Dosage: 100 mg daily
     Route: 042
     Dates: start: 20120621, end: 20120621
  3. ULTIVA [Concomitant]
     Indication: MAINTENANCE OF ANAESTHESIA
     Dosage: Drip infusion
     Dates: start: 20120621, end: 20120621
  4. FENTANYL CITRATE [Concomitant]
     Indication: INDUCTION OF ANAESTHESIA
     Dosage: 50 mcg daily
     Route: 042
     Dates: start: 20120621, end: 20120621
  5. ANAPEINE [Concomitant]
     Indication: EPIDURAL ANAESTHESIA
     Route: 008
     Dates: start: 20120621, end: 20120621
  6. ESLAX [Concomitant]
     Indication: INDUCTION OF ANAESTHESIA
     Dosage: 40 mg daily
     Route: 042
     Dates: start: 20120621, end: 20120621

REACTIONS (1)
  - Ventricular fibrillation [Recovered/Resolved]
